FAERS Safety Report 9386441 (Version 1)
Quarter: 2013Q3

REPORT INFORMATION
  Report Type: Spontaneous
  Country: US (occurrence: None)
  Receive Date: 20130703
  Receipt Date: 20130703
  Transmission Date: 20140515
  Serious: Yes (Death)
  Sender: FDA-Public Use
  Company Number: None

PATIENT
  Age: 15 Year
  Sex: Female
  Weight: 39 kg

DRUGS (1)
  1. MYLOTARG [Suspect]
     Dates: start: 20130610, end: 20130610

REACTIONS (7)
  - Cardio-respiratory arrest [None]
  - Rectal tenesmus [None]
  - Pulse absent [None]
  - Cellulitis [None]
  - Fungal infection [None]
  - Acute graft versus host disease [None]
  - Stem cell transplant [None]
